FAERS Safety Report 9490935 (Version 2)
Quarter: 2013Q4

REPORT INFORMATION
  Report Type: Spontaneous
  Country: US (occurrence: US)
  Receive Date: 20130830
  Receipt Date: 20131007
  Transmission Date: 20140711
  Serious: Yes (Other)
  Sender: FDA-Public Use
  Company Number: US-PFIZER INC-2013250042

PATIENT
  Age: 56 Year
  Sex: Female

DRUGS (6)
  1. LYRICA [Suspect]
     Indication: PARAESTHESIA
     Dosage: 50-75MG TWICE DAILY
     Route: 048
     Dates: start: 20130613, end: 20130728
  2. FLEXERIL [Concomitant]
     Dosage: 10 MG, 4X/DAY
  3. LORTAB [Concomitant]
     Dosage: 10 MG, 4X/DAY
  4. NORVASC [Concomitant]
     Indication: HYPERTENSION
     Dosage: 10 MG, 1X/DAY
  5. AMBINE [Concomitant]
     Indication: HYPOAESTHESIA
     Dosage: 10 MG, 1X/DAY (QHS)
  6. AMBINE [Concomitant]
     Indication: PARAESTHESIA

REACTIONS (1)
  - Stevens-Johnson syndrome [Recovered/Resolved]
